FAERS Safety Report 12456527 (Version 1)
Quarter: 2016Q2

REPORT INFORMATION
  Report Type: Spontaneous
  Country: FR (occurrence: FR)
  Receive Date: 20160610
  Receipt Date: 20160610
  Transmission Date: 20160815
  Serious: Yes (Hospitalization)
  Sender: FDA-Public Use
  Company Number: FR-SA-2016SA105498

PATIENT
  Age: 2 Month
  Sex: Female

DRUGS (17)
  1. VANCOMYCINE [Concomitant]
     Active Substance: VANCOMYCIN
     Route: 042
     Dates: start: 20150101, end: 20150121
  2. LOVENOX [Suspect]
     Active Substance: ENOXAPARIN SODIUM
     Indication: CIRCULATING ANTICOAGULANT
     Route: 058
     Dates: start: 20150101, end: 20150106
  3. DAFALGAN [Concomitant]
     Active Substance: ACETAMINOPHEN
     Route: 048
     Dates: start: 20141231, end: 20150120
  4. MAGNESIUM SULFATE. [Concomitant]
     Active Substance: MAGNESIUM SULFATE
     Route: 042
     Dates: start: 20150106, end: 20150126
  5. LASILIX [Concomitant]
     Active Substance: FUROSEMIDE
     Dosage: DOSES FORM INJECTABLE SOLUTION IN AMPOULE
     Route: 042
     Dates: start: 20141120, end: 20150224
  6. L-THYROXINE [Concomitant]
     Active Substance: LEVOTHYROXINE
     Route: 048
     Dates: start: 20141121, end: 20150224
  7. POTASSIUM CHLORIDE. [Concomitant]
     Active Substance: POTASSIUM CHLORIDE
     Route: 042
     Dates: start: 20150105, end: 20150126
  8. LOVENOX [Interacting]
     Active Substance: ENOXAPARIN SODIUM
     Indication: CIRCULATING ANTICOAGULANT
     Route: 058
     Dates: start: 20150109
  9. UVESTEROL [Concomitant]
     Active Substance: ASCORBIC ACID\ERGOCALCIFEROL\RETINOL\TOCOPHEROL
     Route: 048
     Dates: start: 20141121, end: 20150209
  10. POTASSIUM GLUCONATE [Concomitant]
     Active Substance: POTASSIUM GLUCONATE
     Route: 048
     Dates: start: 20141128, end: 20150217
  11. LOVENOX [Interacting]
     Active Substance: ENOXAPARIN SODIUM
     Indication: CIRCULATING ANTICOAGULANT
     Route: 058
     Dates: start: 20141127, end: 20141130
  12. WARFARIN SODIUM. [Interacting]
     Active Substance: WARFARIN SODIUM
     Indication: THROMBOSIS
     Route: 048
     Dates: start: 20141127, end: 20150106
  13. AMIKACIN [Concomitant]
     Active Substance: AMIKACIN
     Route: 042
  14. CEFTRIAXONE. [Interacting]
     Active Substance: CEFTRIAXONE
     Route: 042
     Dates: start: 20150102, end: 20150106
  15. NEORECORMON [Concomitant]
     Active Substance: ERYTHROPOIETIN
     Route: 042
  16. VITAMIN D3 [Concomitant]
     Active Substance: CHOLECALCIFEROL
     Route: 048
     Dates: start: 20141201, end: 20150223
  17. ACLOTINE [Concomitant]
     Active Substance: ANTITHROMBIN III HUMAN
     Route: 042
     Dates: start: 20141125, end: 20150217

REACTIONS (2)
  - Overdose [Unknown]
  - Haematemesis [Recovered/Resolved]

NARRATIVE: CASE EVENT DATE: 20160106
